FAERS Safety Report 4819465-6 (Version None)
Quarter: 2005Q4

REPORT INFORMATION
  Report Type: 
  Country: None (occurrence: None)
  Receive Date: 20051031
  Receipt Date: 20050713
  Transmission Date: 20060501
  Serious: No
  Sender: FDA-Public Use
  Company Number: 2005PV000331

PATIENT
  Age: 63 Year
  Sex: Female
  Weight: 86.1834 kg

DRUGS (20)
  1. SYMLIN [Suspect]
     Indication: DIABETES MELLITUS NON-INSULIN-DEPENDENT
     Dosage: 60 MCG; TID; SC
     Route: 058
     Dates: start: 20050712
  2. SYMLIN [Suspect]
     Indication: WEIGHT DECREASED
     Dosage: 60 MCG; TID; SC
     Route: 058
     Dates: start: 20050712
  3. GLUCOPHAGE [Concomitant]
  4. LANTUS [Concomitant]
  5. NOVOLOG [Concomitant]
  6. COZAAR [Concomitant]
  7. LIPITOR [Concomitant]
  8. ZETIA [Concomitant]
  9. TRAZODONE HCL [Concomitant]
  10. ATIVAN [Concomitant]
  11. ALLEGRA [Concomitant]
  12. CRANBERRY AND GRAPDE SEED SUPPLEMENT [Concomitant]
  13. CO-ENZYME Q [Concomitant]
  14. ASCORBIC ACID [Concomitant]
  15. CALCIUM GLUCONATE [Concomitant]
  16. OCUVITE [Concomitant]
  17. POTASSIUM [Concomitant]
  18. ALPHA LIPOIC ACID [Concomitant]
  19. PICOLINATE [Concomitant]
  20. CARDIZEM [Concomitant]

REACTIONS (1)
  - BLOOD GLUCOSE INCREASED [None]
